FAERS Safety Report 3030787 (Version 1)
Quarter: 2020Q3

REPORT INFORMATION
  Report Type: Spontaneous
  Country: US (occurrence: None)
  Receive Date: 19980501
  Receipt Date: 19980501
  Transmission Date: 20201105
  Serious: No
  Sender: FDA-Public Use
  Company Number: None

PATIENT
  Sex: Female

DRUGS (6)
  1. ALBUTEROL. [Concomitant]
     Active Substance: ALBUTEROL
  2. ALATROFLOXACIN MESYLATE. [Suspect]
     Active Substance: ALATROFLOXACIN MESYLATE
     Indication: LOWER RESPIRATORY TRACT INFECTION
     Dosage: 300MGX1
     Dates: start: 19980220
  3. PULMOZYME [Concomitant]
     Active Substance: DORNASE ALFA
  4. SYNTHROID [Concomitant]
     Active Substance: LEVOTHYROXINE SODIUM
  5. CEFTAZIDINE IV [Concomitant]
  6. TROBRAMYCIN [Concomitant]

REACTIONS (2)
  - Rash pruritic [None]
  - Rash erythematous [None]

NARRATIVE: CASE EVENT DATE: 19980220
